FAERS Safety Report 10041745 (Version 1)
Quarter: 2014Q1

REPORT INFORMATION
  Report Type: Spontaneous
  Country: US (occurrence: None)
  Receive Date: 20140325
  Receipt Date: 20140325
  Transmission Date: 20141002
  Serious: Yes (Other)
  Sender: FDA-Public Use
  Company Number: 2014-US-003268

PATIENT
  Age: 31 Year
  Sex: Female
  Weight: 90.7 kg

DRUGS (5)
  1. XYREM [Suspect]
     Indication: NARCOLEPSY
     Route: 048
     Dates: start: 201204, end: 2012
  2. LATUDA (LURASIDONE HYDROCHLORIDE) [Concomitant]
  3. EFFEXOR (VENLAFAXINE HYDROCHLORIDE) UNKNOWN [Concomitant]
  4. OMEPRAZOLE (OMEPRAZOLE) [Concomitant]
  5. KLONOPIN (CLONAZEPAM) (TABLETS) [Concomitant]

REACTIONS (1)
  - Sleep apnoea syndrome [None]
